FAERS Safety Report 18253330 (Version 1)
Quarter: 2020Q3

REPORT INFORMATION
  Report Type: Spontaneous
  Country: US (occurrence: US)
  Receive Date: 20200910
  Receipt Date: 20200910
  Transmission Date: 20201103
  Serious: Yes (Hospitalization)
  Sender: FDA-Public Use
  Company Number: US-OTSUKA-2020_021643

PATIENT
  Age: 68 Year
  Sex: Female

DRUGS (1)
  1. SAMSCA [Suspect]
     Active Substance: TOLVAPTAN
     Indication: HYPONATRAEMIA
     Dosage: UNK
     Route: 065
     Dates: end: 20200818

REACTIONS (5)
  - Product availability issue [Unknown]
  - Incorrect product administration duration [Unknown]
  - Feeling abnormal [Not Recovered/Not Resolved]
  - Therapy interrupted [Unknown]
  - Hypertension [Unknown]

NARRATIVE: CASE EVENT DATE: 2020
